FAERS Safety Report 5451016-8 (Version None)
Quarter: 2007Q3

REPORT INFORMATION
  Report Type: 
  Country: None (occurrence: None)
  Receive Date: 20070801
  Receipt Date: 20070530
  Transmission Date: 20080115
  Serious: Yes (Hospitalization)
  Sender: FDA-Public Use
  Company Number: 157055USA

PATIENT
  Age: 69 Year
  Sex: Female

DRUGS (7)
  1. RIBAVIRIN                              200MG (RIBAVIRIN) [Suspect]
     Indication: HEPATITIS C
     Dates: start: 20060901, end: 20070324
  2. PEGINTERFERON ALFA-2A [Suspect]
     Indication: HEPATITIS C
     Dosage: 135 MCG
     Dates: start: 20060901, end: 20070324
  3. VALSARTAN [Concomitant]
  4. LEVOTHYROXINE SODIUM [Concomitant]
  5. MILK THISTLE [Concomitant]
  6. ATENOLOL [Concomitant]
  7. DIURETIC (NOS) [Concomitant]

REACTIONS (11)
  - ANAEMIA [None]
  - ANOREXIA [None]
  - BLOOD POTASSIUM ABNORMAL [None]
  - CARDIAC DISORDER [None]
  - DENTAL CARIES [None]
  - GINGIVAL BLEEDING [None]
  - MOUTH HAEMORRHAGE [None]
  - PLATELET COUNT DECREASED [None]
  - TOOTHACHE [None]
  - WEIGHT DECREASED [None]
  - WHITE BLOOD CELL COUNT DECREASED [None]
